FAERS Safety Report 22069959 (Version 1)
Quarter: 2023Q1

REPORT INFORMATION
  Report Type: Spontaneous
  Country: US (occurrence: US)
  Receive Date: 20230307
  Receipt Date: 20230307
  Transmission Date: 20230418
  Serious: No
  Sender: FDA-Public Use
  Company Number: US-AMNEAL PHARMACEUTICALS-2022-AMRX-01966

PATIENT
  Sex: Female

DRUGS (1)
  1. RYTARY [Suspect]
     Active Substance: CARBIDOPA\LEVODOPA
     Indication: Product used for unknown indication
     Dosage: 36.25-145MG 2 CAPSULES BY MOUTH AT 6AM, 10AM, 2PM, 6PM, 10PM AND TAKE 1 CAPSULE BY MOUTH AT 2AM
     Route: 048

REACTIONS (1)
  - Drug ineffective [Unknown]
